FAERS Safety Report 9613753 (Version 3)
Quarter: 2013Q4

REPORT INFORMATION
  Report Type: Spontaneous
  Country: US (occurrence: US)
  Receive Date: 20131010
  Receipt Date: 20131024
  Transmission Date: 20140711
  Serious: Yes (Disabling)
  Sender: FDA-Public Use
  Company Number: US-PERRIGO-13US009976

PATIENT
  Sex: Female

DRUGS (4)
  1. SALINE NASAL SPRAY 0.65% 312 [Suspect]
     Indication: NASAL DRYNESS
     Dosage: 1 SPRAY, QD OR BID
     Route: 045
     Dates: start: 20130904, end: 20130919
  2. SALINE NASAL SPRAY 0.65% 312 [Suspect]
     Indication: PROPHYLAXIS
  3. ADVAIR [Concomitant]
     Indication: HYPERSENSITIVITY
     Dosage: UNK, AS NEEDED
     Route: 065
  4. SINGULAIR [Concomitant]
     Indication: HYPERSENSITIVITY
     Dosage: UNK
     Route: 065

REACTIONS (5)
  - Ear disorder [Not Recovered/Not Resolved]
  - Ear discomfort [Not Recovered/Not Resolved]
  - Balance disorder [Not Recovered/Not Resolved]
  - Off label use [Unknown]
  - Underdose [Unknown]
